FAERS Safety Report 26088568 (Version 1)
Quarter: 2025Q4

REPORT INFORMATION
  Report Type: Spontaneous
  Country: EU (occurrence: EU)
  Receive Date: 20251125
  Receipt Date: 20251125
  Transmission Date: 20260118
  Serious: Yes (Hospitalization)
  Sender: MYLAN
  Company Number: None

PATIENT
  Age: 87 Year
  Sex: Male
  Weight: 79 kg

DRUGS (1)
  1. METFORMIN [Suspect]
     Active Substance: METFORMIN HYDROCHLORIDE
     Indication: Type 2 diabetes mellitus
     Dosage: 1000 MILLIGRAM, TID (1000 MG THREE TIMES DAILY, 3 G/D)
     Dates: end: 20221226

REACTIONS (2)
  - Lactic acidosis [Recovered/Resolved]
  - Drug level increased [Recovered/Resolved]

NARRATIVE: CASE EVENT DATE: 20221226
